FAERS Safety Report 14364529 (Version 1)
Quarter: 2018Q1

REPORT INFORMATION
  Report Type: Spontaneous
  Country: US (occurrence: US)
  Receive Date: 20180107
  Receipt Date: 20180107
  Transmission Date: 20180509
  Serious: No
  Sender: FDA-Public Use
  Company Number: None

PATIENT
  Age: 67 Year
  Sex: Female

DRUGS (1)
  1. HARVONI [Suspect]
     Active Substance: LEDIPASVIR\SOFOSBUVIR

REACTIONS (4)
  - Abdominal discomfort [None]
  - Musculoskeletal pain [None]
  - Nasopharyngitis [None]
  - Oropharyngeal pain [None]

NARRATIVE: CASE EVENT DATE: 20180106
